FAERS Safety Report 14606366 (Version 1)
Quarter: 2018Q1

REPORT INFORMATION
  Report Type: Spontaneous
  Country: US (occurrence: US)
  Receive Date: 20180307
  Receipt Date: 20180307
  Transmission Date: 20180509
  Serious: No
  Sender: FDA-Public Use
  Company Number: US-VIFOR (INTERNATIONAL) INC.-VIT-2017-04180

PATIENT
  Age: 81 Year
  Sex: Male

DRUGS (26)
  1. ATENOLOL. [Concomitant]
     Active Substance: ATENOLOL
  2. BYSTOLIC [Concomitant]
     Active Substance: NEBIVOLOL HYDROCHLORIDE
  3. PRAVASTATIN SODIUM. [Concomitant]
     Active Substance: PRAVASTATIN SODIUM
  4. SODIUM BICARBONATE. [Concomitant]
     Active Substance: SODIUM BICARBONATE
  5. PARACETAMOL [Concomitant]
     Active Substance: ACETAMINOPHEN
  6. AZILECT [Concomitant]
     Active Substance: RASAGILINE MESYLATE
  7. LEVODOPA~~CARBIDOPA [Concomitant]
  8. FUROSEMIDE. [Concomitant]
     Active Substance: FUROSEMIDE
  9. ASPIR-81 [Concomitant]
     Active Substance: ASPIRIN
  10. LAXATIVE [Concomitant]
     Active Substance: UNSPECIFIED INGREDIENT
  11. DOCUSATE SODIUM. [Concomitant]
     Active Substance: DOCUSATE SODIUM
  12. TAMSULOSIN HYDROCHLORIDE. [Concomitant]
     Active Substance: TAMSULOSIN HYDROCHLORIDE
  13. COLECALCIFEROL [Concomitant]
     Active Substance: CHOLECALCIFEROL
  14. DIVALPROEX SODIUM. [Concomitant]
     Active Substance: DIVALPROEX SODIUM
  15. ENOXAPARIN SODIUM. [Concomitant]
     Active Substance: ENOXAPARIN SODIUM
  16. PARACETAMOL [Concomitant]
     Active Substance: ACETAMINOPHEN
  17. DULCOLAX NOS [Concomitant]
     Active Substance: BISACODYL OR DOCUSATE SODIUM
  18. FAMOTIDINE. [Concomitant]
     Active Substance: FAMOTIDINE
  19. LASIX [Concomitant]
     Active Substance: FUROSEMIDE
  20. ACETYLSALICYLIC ACID [Concomitant]
     Active Substance: ASPIRIN
  21. MILK OF MAGNESIA [Concomitant]
     Active Substance: MAGNESIUM HYDROXIDE
  22. VELTASSA [Suspect]
     Active Substance: PATIROMER
     Indication: HYPERKALAEMIA
     Route: 048
     Dates: start: 20160406
  23. FLOMAX [Concomitant]
     Active Substance: TAMSULOSIN HYDROCHLORIDE
  24. MIRTAZAPINE. [Concomitant]
     Active Substance: MIRTAZAPINE
  25. BENZONATATE. [Concomitant]
     Active Substance: BENZONATATE
  26. MELATONIN [Concomitant]
     Active Substance: MELATONIN

REACTIONS (1)
  - Constipation [Unknown]

NARRATIVE: CASE EVENT DATE: 201604
